FAERS Safety Report 10506899 (Version 2)
Quarter: 2014Q4

REPORT INFORMATION
  Report Type: Spontaneous
  Country: FR (occurrence: FR)
  Receive Date: 20141009
  Receipt Date: 20141022
  Transmission Date: 20150528
  Serious: No
  Sender: FDA-Public Use
  Company Number: FR-JNJFOC-20140926502

PATIENT
  Age: 39 Year
  Sex: Female
  Weight: 86 kg

DRUGS (1)
  1. DUROGESIC [Suspect]
     Active Substance: FENTANYL
     Indication: PROCEDURAL PAIN
     Route: 062
     Dates: start: 20140918, end: 20141003

REACTIONS (5)
  - Inappropriate schedule of drug administration [Unknown]
  - Product quality issue [Unknown]
  - Wrong technique in drug usage process [Unknown]
  - Pain [Unknown]
  - Product use issue [Unknown]

NARRATIVE: CASE EVENT DATE: 20140920
